FAERS Safety Report 9327705 (Version 3)
Quarter: 2013Q4

REPORT INFORMATION
  Report Type: Report from Study
  Country: EG (occurrence: EG)
  Receive Date: 20130604
  Receipt Date: 20131223
  Transmission Date: 20140711
  Serious: Yes (Hospitalization)
  Sender: FDA-Public Use
  Company Number: EG-US-EMD SERONO, INC.-7213068

PATIENT
  Age: 38 Year
  Sex: Female
  Weight: 65 kg

DRUGS (2)
  1. NO STUDY MEDICATION [Suspect]
     Indication: IN VITRO FERTILISATION
  2. LUCRIN [Concomitant]
     Indication: IN VITRO FERTILISATION
     Dates: start: 20130505, end: 20130605

REACTIONS (1)
  - Ovarian cyst [Recovered/Resolved]
